FAERS Safety Report 5517170-4 (Version None)
Quarter: 2007Q4

REPORT INFORMATION
  Report Type: 
  Country: None (occurrence: None)
  Receive Date: 20071114
  Receipt Date: 20071102
  Transmission Date: 20080405
  Serious: Yes (Hospitalization)
  Sender: FDA-Public Use
  Company Number: US-ROCHE-514916

PATIENT
  Age: 58 Year
  Sex: Male
  Weight: 71.7 kg

DRUGS (10)
  1. PEG-INTERFERON ALFA 2A (RO 25-8310) [Suspect]
     Indication: HEPATITIS C
     Route: 058
     Dates: start: 20070504
  2. RIBAVIRIN [Suspect]
     Indication: HEPATITIS C
     Route: 048
     Dates: start: 20070504
  3. BLINDED VX-950 [Suspect]
     Indication: HEPATITIS C
     Route: 048
     Dates: start: 20070504
  4. BENAZEPRIL HCL + HYDROCHLOROTHIAZIDE [Concomitant]
     Dosage: DOSING AMOUNT REPORTED AS 20 / 25 DAILY.
  5. ALBUTEROL [Concomitant]
  6. FEXOFENADINE [Concomitant]
  7. SPIRIVA [Concomitant]
     Dosage: DAILY.
  8. CEPHALEXIN [Concomitant]
     Dates: start: 20070523, end: 20070614
  9. CEPHALEXIN [Concomitant]
     Dates: start: 20070630
  10. ENTEX CAP [Concomitant]
     Dosage: REPORTED AS ENTEX OLD FORM.

REACTIONS (2)
  - DEHYDRATION [None]
  - SYNCOPE [None]
